FAERS Safety Report 4805747-0 (Version None)
Quarter: 2005Q4

REPORT INFORMATION
  Report Type: 
  Country: None (occurrence: None)
  Receive Date: 20051021
  Receipt Date: 20051011
  Transmission Date: 20060501
  Serious: Yes (Other)
  Sender: FDA-Public Use
  Company Number: BE-ROCHE-420544

PATIENT
  Age: 38 Year
  Sex: Male
  Weight: 55 kg

DRUGS (7)
  1. FUZEON [Suspect]
     Route: 058
     Dates: start: 20040209
  2. SOMATULINE AUTOGEL [Concomitant]
     Dates: start: 20040619
  3. ZIDOVUDINE [Concomitant]
  4. LAMIVUDINE [Concomitant]
  5. TENOFOVIR [Concomitant]
  6. RITONAVIR [Concomitant]
  7. TIPRANAVIR [Concomitant]

REACTIONS (1)
  - SYPHILIS GENITAL [None]
